FAERS Safety Report 19078697 (Version 1)
Quarter: 2021Q1

REPORT INFORMATION
  Report Type: Other
  Country: US (occurrence: GB)
  Receive Date: 20210331
  Receipt Date: 20210331
  Transmission Date: 20210420
  Serious: Yes (Other)
  Sender: FDA-Public Use
  Company Number: GB-BRECKENRIDGE PHARMACEUTICAL, INC.-2108672

PATIENT
  Age: 53 Year
  Sex: Male
  Weight: 101 kg

DRUGS (6)
  1. TICAGRELOR. [Concomitant]
     Active Substance: TICAGRELOR
  2. BISOPROLOL. [Concomitant]
     Active Substance: BISOPROLOL FUMARATE
  3. RAMIPRIL. [Concomitant]
     Active Substance: RAMIPRIL
  4. CLOPIDOGREL [Concomitant]
     Active Substance: CLOPIDOGREL BISULFATE
  5. OMEPRAZOLE. [Suspect]
     Active Substance: OMEPRAZOLE
     Indication: GASTROINTESTINAL DISORDER PROPHYLAXIS
  6. ASPIRIN. [Concomitant]
     Active Substance: ASPIRIN

REACTIONS (1)
  - Dyspnoea [None]
